FAERS Safety Report 11441189 (Version 1)
Quarter: 2015Q3

REPORT INFORMATION
  Report Type: Spontaneous
  Country: US (occurrence: US)
  Receive Date: 20150821
  Receipt Date: 20150821
  Transmission Date: 20151125
  Serious: No
  Sender: FDA-Public Use
  Company Number: US-ELI_LILLY_AND_COMPANY-US200802003900

PATIENT
  Sex: Female

DRUGS (1)
  1. CYMBALTA [Suspect]
     Active Substance: DULOXETINE HYDROCHLORIDE
     Dates: end: 20080212

REACTIONS (7)
  - Oropharyngeal pain [Unknown]
  - Rhinorrhoea [Unknown]
  - Pyrexia [Unknown]
  - Constipation [Unknown]
  - Diarrhoea [Unknown]
  - Tinnitus [Unknown]
  - Fatigue [Unknown]
